FAERS Safety Report 9025074 (Version 1)
Quarter: 2013Q1

REPORT INFORMATION
  Report Type: Spontaneous
  Country: FR (occurrence: FR)
  Receive Date: 20130121
  Receipt Date: 20130121
  Transmission Date: 20140127
  Serious: Yes (Hospitalization)
  Sender: FDA-Public Use
  Company Number: FR-BRISTOL-MYERS SQUIBB COMPANY-17289133

PATIENT
  Age: 72 Year
  Sex: Male

DRUGS (5)
  1. COUMADINE [Suspect]
  2. CYMBALTA [Suspect]
     Route: 048
  3. XATRAL [Suspect]
  4. NOVONORM [Suspect]
     Route: 048
  5. INEXIUM [Suspect]

REACTIONS (2)
  - Arthritis bacterial [Unknown]
  - Cholestasis [Unknown]
